FAERS Safety Report 14023698 (Version 1)
Quarter: 2017Q3

REPORT INFORMATION
  Report Type: Spontaneous
  Country: US (occurrence: US)
  Receive Date: 20170929
  Receipt Date: 20170929
  Transmission Date: 20171128
  Serious: Yes (Other)
  Sender: FDA-Public Use
  Company Number: US-PFIZER INC-2017416498

PATIENT
  Age: 17 Year
  Sex: Female

DRUGS (1)
  1. KETAMINE HCL [Suspect]
     Active Substance: KETAMINE HYDROCHLORIDE
     Dosage: UNK

REACTIONS (9)
  - Dysuria [Unknown]
  - Biliary dilatation [Unknown]
  - Hydronephrosis [Unknown]
  - Haematuria [Unknown]
  - Transaminases increased [Unknown]
  - Sterile pyuria [Unknown]
  - Drug abuse [Unknown]
  - Pollakiuria [Unknown]
  - Abdominal pain upper [Unknown]
